FAERS Safety Report 7754536-6 (Version None)
Quarter: 2011Q3

REPORT INFORMATION
  Report Type: 
  Country: None (occurrence: None)
  Receive Date: 20110915
  Receipt Date: 20110908
  Transmission Date: 20111222
  Serious: Yes (Hospitalization)
  Sender: FDA-Public Use
  Company Number: US-AMGEN-USASP2011038355

PATIENT
  Age: 61 Year
  Sex: Female

DRUGS (1)
  1. ENBREL [Suspect]
     Indication: RHEUMATOID ARTHRITIS
     Dosage: 50 MG, QWK
     Dates: start: 20101201

REACTIONS (6)
  - THERAPEUTIC RESPONSE DECREASED [None]
  - BACK PAIN [None]
  - RHEUMATOID ARTHRITIS [None]
  - INJECTION SITE REACTION [None]
  - HYPOAESTHESIA [None]
  - INJECTION SITE PAIN [None]
